FAERS Safety Report 8824916 (Version 2)
Quarter: 2012Q4

REPORT INFORMATION
  Report Type: 
  Country: US (occurrence: US)
  Receive Date: 20121004
  Receipt Date: 20121015
  Transmission Date: 20130627
  Serious: Yes (Death, Other)
  Sender: FDA-Public Use
  Company Number: US-ROCHE-1122918

PATIENT
  Sex: Male

DRUGS (5)
  1. RITUXAN [Suspect]
     Indication: PROLYMPHOCYTIC LEUKAEMIA
     Dosage: 730-750mg
     Route: 042
     Dates: start: 20001220, end: 20010718
  2. RITUXAN [Suspect]
     Indication: LYMPHOCYTIC LEUKAEMIA
  3. FOLIC ACID [Concomitant]
  4. VITAMIN E [Concomitant]
  5. ALLOPURINOL [Concomitant]
     Route: 065

REACTIONS (8)
  - Death [Fatal]
  - Thrombocytopenia [Unknown]
  - Hypersensitivity [Unknown]
  - Tremor [Recovered/Resolved]
  - Chills [Recovered/Resolved]
  - Pyrexia [Unknown]
  - Asthenia [Unknown]
  - Disease progression [Unknown]
